FAERS Safety Report 6584984-1 (Version None)
Quarter: 2010Q1

REPORT INFORMATION
  Report Type: 
  Country: None (occurrence: None)
  Receive Date: 20100217
  Receipt Date: 20100205
  Transmission Date: 20100710
  Serious: Yes (Other)
  Sender: FDA-Public Use
  Company Number: CA-ELI_LILLY_AND_COMPANY-CA201002002461

PATIENT
  Sex: Female

DRUGS (3)
  1. ZYPREXA [Suspect]
     Indication: SCHIZOPHRENIA
     Dosage: 20 MG, DAILY (1/D)
     Dates: start: 20080101
  2. TYLENOL W/ CODEINE NO. 3 [Concomitant]
  3. CIPRALEX [Concomitant]

REACTIONS (8)
  - CONFUSIONAL STATE [None]
  - DIABETES MELLITUS [None]
  - HIP ARTHROPLASTY [None]
  - HYPERVIGILANCE [None]
  - LETHARGY [None]
  - POLLAKIURIA [None]
  - RESORPTION BONE INCREASED [None]
  - WEIGHT INCREASED [None]
